FAERS Safety Report 8781339 (Version 2)
Quarter: 2013Q4

REPORT INFORMATION
  Report Type: Spontaneous
  Country: JP (occurrence: JP)
  Receive Date: 20120913
  Receipt Date: 20131105
  Transmission Date: 20140711
  Serious: Yes (Hospitalization, Disabling)
  Sender: FDA-Public Use
  Company Number: JP-009507513-1207JPN001463

PATIENT
  Age: 87 Year
  Sex: Female

DRUGS (6)
  1. FOSAMAC TABLETS-5 [Suspect]
     Indication: OSTEOPOROSIS
     Dosage: DAILY DOSAGE UNKNOWN
     Route: 048
  2. AMLODIPINE [Concomitant]
     Dosage: 2.5 MG, QD
     Route: 048
  3. LIPITOR [Concomitant]
     Dosage: 10 MG, QD
     Route: 048
  4. BAYASPIRIN [Concomitant]
     Dosage: 100 MG, QD
     Route: 048
  5. GASTER D [Concomitant]
     Dosage: 10 MG, BID
     Route: 048
  6. MUCOSTA [Concomitant]
     Dosage: 100 MG, BID
     Route: 048

REACTIONS (3)
  - Osteonecrosis of jaw [Not Recovered/Not Resolved]
  - Loss of consciousness [Unknown]
  - Tooth extraction [Unknown]
